FAERS Safety Report 8050775-8 (Version None)
Quarter: 2012Q1

REPORT INFORMATION
  Report Type: 
  Country: None (occurrence: None)
  Receive Date: 20120117
  Receipt Date: 20111124
  Transmission Date: 20120608
  Serious: Yes (Other)
  Sender: FDA-Public Use
  Company Number: PHHY2011GB105276

PATIENT
  Age: 61 Year
  Sex: Female

DRUGS (10)
  1. INDAPAMIDE [Concomitant]
     Dosage: 1.5 MG, UNK
     Dates: start: 20101001
  2. SOTALOL HCL [Concomitant]
  3. BENDROFLUMETHIAZIDE [Concomitant]
     Dosage: UNK UKN, UNK
     Dates: start: 20110113
  4. SIMVASTATIN [Concomitant]
     Dosage: 40 MG, UNK
     Dates: start: 20100913
  5. RAMIPRIL [Suspect]
     Indication: BLOOD PRESSURE
     Dosage: 0.75 MG, QD
     Dates: start: 20101118
  6. CHAPARRAL DANDELION BLEND [Concomitant]
     Dosage: UNK UKN, UNK
  7. RAMIPRIL [Suspect]
     Dosage: 2.5 MG, QD
     Dates: start: 20101206, end: 20101216
  8. MEBEVERINE [Concomitant]
  9. LOSARTAN POTASSIUM [Concomitant]
     Dosage: UNK UKN, UNK
  10. ASPIRIN [Concomitant]
     Dosage: 75 MG, QD
     Dates: start: 20101202

REACTIONS (3)
  - BLOOD PRESSURE INCREASED [None]
  - VISION BLURRED [None]
  - DRUG HYPERSENSITIVITY [None]
